FAERS Safety Report 6970486-7 (Version None)
Quarter: 2010Q3

REPORT INFORMATION
  Report Type: 
  Country: None (occurrence: None)
  Receive Date: 20100903
  Receipt Date: 20100826
  Transmission Date: 20110219
  Serious: Yes (Death, Life-Threatening, Hospitalization)
  Sender: FDA-Public Use
  Company Number: 8053182

PATIENT
  Sex: Female
  Weight: 59 kg

DRUGS (11)
  1. CERTOLIZUMAB PEGOL (CERTOLIZUMAB PEGOL) [Suspect]
     Indication: RHEUMATOID ARTHRITIS
     Dosage: (400 MG  1 X/2 WEEKS SUBCUTANEOUS), (200 MG 1X/2 WEEKS SUBCUTANEOUS)
     Route: 058
     Dates: start: 20051216, end: 20071129
  2. CERTOLIZUMAB PEGOL (CERTOLIZUMAB PEGOL) [Suspect]
     Indication: RHEUMATOID ARTHRITIS
     Dosage: (400 MG  1 X/2 WEEKS SUBCUTANEOUS), (200 MG 1X/2 WEEKS SUBCUTANEOUS)
     Route: 058
     Dates: start: 20071213, end: 20091001
  3. METHOTREXATE [Concomitant]
  4. ACETAMINOPHEN [Concomitant]
  5. FOLIC ACID [Concomitant]
  6. CALCIUM CARBONATE [Concomitant]
  7. ALENDRONATE SODIUM [Concomitant]
  8. ATENOLOL [Concomitant]
  9. ASPIRIN /00002701/ [Concomitant]
  10. SERTRALINE [Concomitant]
  11. TRAMADOL [Concomitant]

REACTIONS (10)
  - BILIARY DILATATION [None]
  - DEHYDRATION [None]
  - HEPATIC CALCIFICATION [None]
  - HEPATIC NEOPLASM [None]
  - LYMPHADENOPATHY [None]
  - MASS [None]
  - NAUSEA [None]
  - NEOPLASM MALIGNANT [None]
  - PYLORIC STENOSIS [None]
  - VOMITING [None]
